FAERS Safety Report 17137560 (Version 2)
Quarter: 2020Q1

REPORT INFORMATION
  Report Type: Spontaneous
  Country: HU (occurrence: HU)
  Receive Date: 20191210
  Receipt Date: 20200123
  Transmission Date: 20200409
  Serious: Yes (Other)
  Sender: FDA-Public Use
  Company Number: HU-UCBSA-2019053190

PATIENT

DRUGS (1)
  1. BRIVARACETAM [Suspect]
     Active Substance: BRIVARACETAM
     Indication: PARTIAL SEIZURES
     Dosage: UNK

REACTIONS (6)
  - Decreased appetite [Recovered/Resolved]
  - Intentional self-injury [Unknown]
  - Somnolence [Unknown]
  - Drug ineffective [Unknown]
  - Abnormal behaviour [Unknown]
  - Weight decreased [Recovered/Resolved]
